FAERS Safety Report 17483293 (Version 1)
Quarter: 2020Q1

REPORT INFORMATION
  Report Type: Report from Study
  Country: CO (occurrence: CO)
  Receive Date: 20200302
  Receipt Date: 20200302
  Transmission Date: 20200409
  Serious: Yes (Hospitalization)
  Sender: FDA-Public Use
  Company Number: CO-ROCHE-2510544

PATIENT
  Sex: Male

DRUGS (1)
  1. CELLCEPT [Suspect]
     Active Substance: MYCOPHENOLATE MOFETIL\MYCOPHENOLATE MOFETIL HYDROCHLORIDE
     Indication: RENAL AND LIVER TRANSPLANT
     Dosage: 2 AT 10 IN THE MORNING AND 2 AT 10 AT NIGHT
     Route: 048

REACTIONS (4)
  - Pneumonia [Unknown]
  - Chills [Unknown]
  - Malaise [Unknown]
  - Dyspnoea [Unknown]
